FAERS Safety Report 24783831 (Version 1)
Quarter: 2024Q4

REPORT INFORMATION
  Report Type: Spontaneous
  Country: FR (occurrence: FR)
  Receive Date: 20241227
  Receipt Date: 20241227
  Transmission Date: 20250115
  Serious: Yes (Hospitalization)
  Sender: REGENERON
  Company Number: FR-SANOFI-02350207

PATIENT
  Age: 55 Year
  Sex: Male

DRUGS (1)
  1. PRALUENT [Suspect]
     Active Substance: ALIROCUMAB
     Indication: Product used for unknown indication
     Dosage: 1 DF, QOW

REACTIONS (4)
  - Asthma [Unknown]
  - Nausea [Unknown]
  - Product storage error [Unknown]
  - Poor quality product administered [Unknown]
